FAERS Safety Report 5713016-X (Version None)
Quarter: 2008Q2

REPORT INFORMATION
  Report Type: 
  Country: None (occurrence: None)
  Receive Date: 20080422
  Receipt Date: 20080411
  Transmission Date: 20081010
  Serious: Yes (Hospitalization)
  Sender: FDA-Public Use
  Company Number: CH-ROCHE-558555

PATIENT
  Age: 54 Year
  Sex: Male
  Weight: 80 kg

DRUGS (5)
  1. ROCEPHIN [Suspect]
     Indication: UROSEPSIS
     Route: 041
     Dates: start: 20080307, end: 20080310
  2. IMMUCYST [Suspect]
     Route: 066
     Dates: start: 20080101, end: 20080307
  3. RIFAMPICIN [Suspect]
     Indication: DRUG USE FOR UNKNOWN INDICATION
     Route: 048
     Dates: start: 20080309
  4. RIMIFON [Suspect]
     Indication: DRUG USE FOR UNKNOWN INDICATION
     Route: 048
     Dates: start: 20080309
  5. SIMCORA [Concomitant]
     Route: 048

REACTIONS (4)
  - CONDITION AGGRAVATED [None]
  - LIVER INJURY [None]
  - SEPSIS [None]
  - THROMBOCYTOPENIA [None]
